FAERS Safety Report 12737351 (Version 1)
Quarter: 2016Q3

REPORT INFORMATION
  Report Type: Spontaneous
  Country: US (occurrence: US)
  Receive Date: 20160912
  Receipt Date: 20160912
  Transmission Date: 20161109
  Serious: No
  Sender: FDA-Public Use
  Company Number: US-BAYER-2016-175837

PATIENT
  Age: 75 Year
  Sex: Male
  Weight: 117.1 kg

DRUGS (1)
  1. ALEVE [Suspect]
     Active Substance: NAPROXEN SODIUM
     Indication: PRODUCT USED FOR UNKNOWN INDICATION
     Dosage: 1 DF (5 TIMES OVER THE LAST COUPLE OF MONTHS)
     Route: 048
     Dates: start: 201606

REACTIONS (3)
  - Product use issue [Unknown]
  - Therapeutic response unexpected [None]
  - Circumstance or information capable of leading to medication error [None]

NARRATIVE: CASE EVENT DATE: 201606
